FAERS Safety Report 23038649 (Version 1)
Quarter: 2023Q4

REPORT INFORMATION
  Report Type: Spontaneous
  Country: US (occurrence: US)
  Receive Date: 20231006
  Receipt Date: 20231006
  Transmission Date: 20240110
  Serious: No
  Sender: FDA-Public Use
  Company Number: US-BIOGENIDEC-2015BI002744

PATIENT
  Age: 16 Year
  Sex: Female
  Weight: 82 kg

DRUGS (10)
  1. TECFIDERA [Suspect]
     Active Substance: DIMETHYL FUMARATE
     Indication: Multiple sclerosis
     Dosage: MAINTENANCE DOSE
     Route: 050
     Dates: start: 201406
  2. TECFIDERA [Suspect]
     Active Substance: DIMETHYL FUMARATE
     Route: 050
     Dates: start: 201307
  3. VITAMIN D [Concomitant]
     Active Substance: VITAMIN D NOS
     Indication: Product used for unknown indication
     Route: 050
  4. MOTRIN [Concomitant]
     Active Substance: IBUPROFEN
     Indication: Product used for unknown indication
     Route: 050
  5. BIOTIN [Concomitant]
     Active Substance: BIOTIN
     Route: 050
  6. VITAMINS [Concomitant]
     Active Substance: VITAMINS
     Route: 050
  7. CHOLECALCIFEROL [Concomitant]
     Active Substance: CHOLECALCIFEROL
     Route: 050
  8. OMEGA-3 ACIDS [Concomitant]
     Active Substance: OMEGA-3 FATTY ACIDS
     Route: 050
  9. Oxybutyrin [Concomitant]
     Route: 050
  10. VITAMIN B12 [Concomitant]
     Active Substance: CYANOCOBALAMIN
     Route: 050

REACTIONS (4)
  - Off label use [Recovered/Resolved]
  - Magnetic resonance imaging abnormal [Unknown]
  - Flushing [Unknown]
  - Pruritus [Unknown]

NARRATIVE: CASE EVENT DATE: 20130701
